FAERS Safety Report 8229521 (Version 4)
Quarter: 2013Q1

REPORT INFORMATION
  Report Type: Spontaneous
  Country: AU (occurrence: AU)
  Receive Date: 20111104
  Receipt Date: 20130314
  Transmission Date: 20140127
  Serious: Yes (Other)
  Sender: FDA-Public Use
  Company Number: PHHY2011AU95369

PATIENT
  Age: 57 None
  Sex: Male
  Weight: 80 kg

DRUGS (7)
  1. SANDOSTATIN LAR [Suspect]
     Indication: ACROMEGALY
     Dosage: 20 MG, QW4
     Route: 030
     Dates: start: 201002
  2. SANDOSTATIN LAR [Suspect]
     Dosage: 30 MG, QW4
     Route: 030
     Dates: start: 201012
  3. NEXIUM [Concomitant]
     Indication: GASTROOESOPHAGEAL REFLUX DISEASE
     Dosage: 20 MG,MANE
  4. TESTOSTERONE [Concomitant]
     Indication: SECONDARY HYPOGONADISM
     Dosage: 50 MG, MANE
     Dates: start: 2006
  5. LIPITOR [Concomitant]
     Indication: DYSLIPIDAEMIA
     Dosage: 20 MG, ALTERNATE DAYS
     Route: 048
     Dates: start: 2006
  6. CALTRATE [Concomitant]
     Indication: OSTEOPENIA
     Dosage: 600 MG MANE
     Dates: start: 2010
  7. ASPIRIN [Concomitant]
     Dosage: UNK UKN, UNK
     Dates: start: 2010

REACTIONS (4)
  - Injection site bruising [Recovered/Resolved]
  - Pain [Recovered/Resolved]
  - Insulin-like growth factor increased [Unknown]
  - Gait disturbance [Recovered/Resolved]
